FAERS Safety Report 6191066-X (Version None)
Quarter: 2009Q2

REPORT INFORMATION
  Report Type: 
  Country: None (occurrence: None)
  Receive Date: 20090515
  Receipt Date: 20090506
  Transmission Date: 20091009
  Serious: Yes (Death, Hospitalization)
  Sender: FDA-Public Use
  Company Number: US-BAXTER-2009BH008138

PATIENT
  Age: 35 Year
  Sex: Male

DRUGS (3)
  1. DIANEAL [Suspect]
     Indication: PERITONEAL DIALYSIS
     Route: 033
     Dates: start: 20051116
  2. EXTRANEAL [Suspect]
     Indication: PERITONEAL DIALYSIS
     Route: 033
  3. COUMADIN [Suspect]
     Indication: HYPERCOAGULATION
     Route: 065

REACTIONS (7)
  - COMA [None]
  - CORONARY ARTERY DISEASE [None]
  - HAEMORRHAGE INTRACRANIAL [None]
  - HYPERCOAGULATION [None]
  - MENTAL STATUS CHANGES [None]
  - PERITONITIS BACTERIAL [None]
  - SYNCOPE [None]
